FAERS Safety Report 15950417 (Version 2)
Quarter: 2019Q1

REPORT INFORMATION
  Report Type: Spontaneous
  Country: FR (occurrence: FR)
  Receive Date: 20190211
  Receipt Date: 20190220
  Transmission Date: 20190417
  Serious: Yes (Life-Threatening, Other)
  Sender: FDA-Public Use
  Company Number: FR-JNJFOC-20190209779

PATIENT
  Age: 70 Year
  Sex: Male

DRUGS (33)
  1. FLUDARA [Suspect]
     Active Substance: FLUDARABINE PHOSPHATE
     Indication: NON-HODGKIN^S LYMPHOMA
     Route: 048
  2. PEGINTRON [Suspect]
     Active Substance: PEGINTERFERON ALFA-2B
     Indication: NON-HODGKIN^S LYMPHOMA
     Route: 058
  3. ETOPOSIDE. [Suspect]
     Active Substance: ETOPOSIDE
     Indication: NON-HODGKIN^S LYMPHOMA
     Route: 042
  4. DOXORUBICIN HYDROCHLORIDE. [Suspect]
     Active Substance: DOXORUBICIN HYDROCHLORIDE
     Indication: NON-HODGKIN^S LYMPHOMA
     Route: 042
  5. ENDOXAN [Suspect]
     Active Substance: CYCLOPHOSPHAMIDE
     Indication: NON-HODGKIN^S LYMPHOMA
     Route: 042
  6. MITOXANTRONE [Concomitant]
     Active Substance: MITOXANTRONE HYDROCHLORIDE
     Indication: NON-HODGKIN^S LYMPHOMA
     Route: 065
     Dates: start: 20060705
  7. MITOXANTRONE [Concomitant]
     Active Substance: MITOXANTRONE HYDROCHLORIDE
     Indication: NON-HODGKIN^S LYMPHOMA
     Route: 065
     Dates: start: 20060705
  8. MITOXANTRONE [Concomitant]
     Active Substance: MITOXANTRONE HYDROCHLORIDE
     Indication: NON-HODGKIN^S LYMPHOMA
     Route: 065
  9. ETOPOSIDE. [Suspect]
     Active Substance: ETOPOSIDE
     Indication: NON-HODGKIN^S LYMPHOMA
     Route: 042
     Dates: start: 20020607, end: 20031030
  10. ETOPOSIDE. [Suspect]
     Active Substance: ETOPOSIDE
     Indication: NON-HODGKIN^S LYMPHOMA
     Route: 042
  11. MABTHERA [Suspect]
     Active Substance: RITUXIMAB
     Indication: NON-HODGKIN^S LYMPHOMA
     Route: 042
  12. ENDOXAN [Suspect]
     Active Substance: CYCLOPHOSPHAMIDE
     Indication: NON-HODGKIN^S LYMPHOMA
     Route: 042
     Dates: start: 20020607, end: 20031030
  13. ENDOXAN [Suspect]
     Active Substance: CYCLOPHOSPHAMIDE
     Indication: NON-HODGKIN^S LYMPHOMA
     Route: 042
  14. MABTHERA [Suspect]
     Active Substance: RITUXIMAB
     Indication: NON-HODGKIN^S LYMPHOMA
     Route: 042
  15. PREDNISOLONE. [Concomitant]
     Active Substance: PREDNISOLONE
     Indication: NON-HODGKIN^S LYMPHOMA
     Route: 065
     Dates: start: 20020607, end: 20031030
  16. DOXORUBICIN HYDROCHLORIDE. [Suspect]
     Active Substance: DOXORUBICIN HYDROCHLORIDE
     Indication: NON-HODGKIN^S LYMPHOMA
     Route: 042
  17. PEGINTRON [Suspect]
     Active Substance: PEGINTERFERON ALFA-2B
     Indication: NON-HODGKIN^S LYMPHOMA
     Route: 058
     Dates: start: 20020607, end: 20031030
  18. ETOPOSIDE. [Suspect]
     Active Substance: ETOPOSIDE
     Indication: NON-HODGKIN^S LYMPHOMA
     Route: 042
     Dates: start: 20020607, end: 20031030
  19. PREDNISOLONE. [Concomitant]
     Active Substance: PREDNISOLONE
     Indication: NON-HODGKIN^S LYMPHOMA
     Route: 065
  20. DOXORUBICIN HYDROCHLORIDE. [Suspect]
     Active Substance: DOXORUBICIN HYDROCHLORIDE
     Indication: NON-HODGKIN^S LYMPHOMA
     Route: 042
     Dates: start: 20020607, end: 20031030
  21. PEGINTRON [Suspect]
     Active Substance: PEGINTERFERON ALFA-2B
     Indication: NON-HODGKIN^S LYMPHOMA
     Route: 058
  22. REBIF [Suspect]
     Active Substance: INTERFERON BETA-1A
     Indication: NON-HODGKIN^S LYMPHOMA
     Route: 058
     Dates: start: 20020707, end: 20031030
  23. PREDNISOLONE. [Concomitant]
     Active Substance: PREDNISOLONE
     Indication: NON-HODGKIN^S LYMPHOMA
     Route: 065
     Dates: start: 20020607, end: 20031030
  24. FLUDARA [Suspect]
     Active Substance: FLUDARABINE PHOSPHATE
     Indication: NON-HODGKIN^S LYMPHOMA
     Route: 048
     Dates: start: 20060705, end: 20070128
  25. FLUDARA [Suspect]
     Active Substance: FLUDARABINE PHOSPHATE
     Indication: NON-HODGKIN^S LYMPHOMA
     Route: 048
  26. MABTHERA [Suspect]
     Active Substance: RITUXIMAB
     Indication: NON-HODGKIN^S LYMPHOMA
     Route: 042
     Dates: start: 20060705, end: 20070125
  27. MABTHERA [Suspect]
     Active Substance: RITUXIMAB
     Indication: NON-HODGKIN^S LYMPHOMA
     Route: 042
     Dates: start: 20060705, end: 20070125
  28. DOXORUBICIN HYDROCHLORIDE. [Suspect]
     Active Substance: DOXORUBICIN HYDROCHLORIDE
     Indication: NON-HODGKIN^S LYMPHOMA
     Route: 042
     Dates: start: 20020607, end: 20031030
  29. ENDOXAN [Suspect]
     Active Substance: CYCLOPHOSPHAMIDE
     Indication: NON-HODGKIN^S LYMPHOMA
     Route: 042
     Dates: start: 20020607, end: 20031030
  30. FLUDARA [Suspect]
     Active Substance: FLUDARABINE PHOSPHATE
     Indication: NON-HODGKIN^S LYMPHOMA
     Route: 048
     Dates: start: 20060705, end: 20070128
  31. PEGINTRON [Suspect]
     Active Substance: PEGINTERFERON ALFA-2B
     Indication: NON-HODGKIN^S LYMPHOMA
     Route: 058
     Dates: start: 20020607, end: 20031030
  32. PREDNISOLONE. [Concomitant]
     Active Substance: PREDNISOLONE
     Indication: NON-HODGKIN^S LYMPHOMA
     Route: 065
  33. MITOXANTRONE [Concomitant]
     Active Substance: MITOXANTRONE HYDROCHLORIDE
     Indication: NON-HODGKIN^S LYMPHOMA
     Route: 065

REACTIONS (4)
  - Off label use [Unknown]
  - Product use in unapproved indication [Unknown]
  - Metastasis [Not Recovered/Not Resolved]
  - Bladder cancer [Not Recovered/Not Resolved]

NARRATIVE: CASE EVENT DATE: 20020607
